FAERS Safety Report 10423360 (Version 2)
Quarter: 2014Q4

REPORT INFORMATION
  Report Type: Spontaneous
  Country: US (occurrence: None)
  Receive Date: 20140722
  Receipt Date: 20141020
  Transmission Date: 20150528
  Serious: No
  Sender: FDA-Public Use
  Company Number: AEGR000399

PATIENT
  Age: 54 Year
  Sex: Female
  Weight: 62.1 kg

DRUGS (10)
  1. CALCIUM (CALCIUM CARBONATE) [Concomitant]
  2. ZETIA [Concomitant]
     Active Substance: EZETIMIBE
  3. SYNTHROID [Concomitant]
     Active Substance: LEVOTHYROXINE SODIUM
  4. ASPIRIN (ACETYLSALICYLIC ACID) [Concomitant]
     Active Substance: ASPIRIN
  5. COENZYME Q10 (UBIDECARENONE) [Concomitant]
  6. JUXTAPID [Suspect]
     Active Substance: LOMITAPIDE MESYLATE
     Indication: TYPE IIA HYPERLIPIDAEMIA
     Route: 048
     Dates: start: 20140404
  7. VITAMIN C [Concomitant]
     Active Substance: ASCORBIC ACID
  8. FISH OIL (FISH OIL) [Concomitant]
     Active Substance: FISH OIL
  9. VITAMIN D [Concomitant]
     Active Substance: CHOLECALCIFEROL
  10. PLAQUENIL [Concomitant]
     Active Substance: HYDROXYCHLOROQUINE SULFATE

REACTIONS (8)
  - Abdominal tenderness [None]
  - Headache [None]
  - Abdominal pain upper [None]
  - Oropharyngeal pain [None]
  - Arthralgia [None]
  - Nausea [None]
  - Diarrhoea [None]
  - Nasopharyngitis [None]

NARRATIVE: CASE EVENT DATE: 20140405
